FAERS Safety Report 16619028 (Version 1)
Quarter: 2019Q3

REPORT INFORMATION
  Report Type: Spontaneous
  Country: DE (occurrence: DE)
  Receive Date: 20190723
  Receipt Date: 20190723
  Transmission Date: 20191004
  Serious: Yes (Hospitalization)
  Sender: FDA-Public Use
  Company Number: DE-TEVA-2019-DE-1080300

PATIENT
  Age: 59 Year
  Sex: Male
  Weight: 81 kg

DRUGS (13)
  1. LEVOFLOXACIN. [Suspect]
     Active Substance: LEVOFLOXACIN
     Dosage: NK NK, NK, LAST ON 19.03.2018, TABLETS
     Route: 048
  2. DESFLURAN [Suspect]
     Active Substance: DESFLURANE
     Dosage: NK NK, INTRAOPERATIVE ANAESTHESIA, INHALATION ANAESTHETIC
     Route: 055
  3. METOPROLOL. [Concomitant]
     Active Substance: METOPROLOL
     Dosage: 50 MG, 0.5-0-0-0, TABLETTEN
     Route: 048
  4. PIRITRAMIDE [Suspect]
     Active Substance: PIRITRAMIDE
     Dosage: NK NK, INTRAOPERATIVE ANAESTHESIA, SOLUTION FOR INJECTION/INFUSION
     Route: 042
  5. CEFUROXIM [Suspect]
     Active Substance: CEFUROXIME
     Dosage: NK NK, INTRAOPERATIVE ANAESTHESIA, SOLUTION FOR INJECTION/INFUSION
     Route: 042
  6. PANTOPRAZOL [Concomitant]
     Active Substance: PANTOPRAZOLE SODIUM
     Dosage: 40 MG, 1-0-0-0, TABLETTEN
     Route: 048
  7. ENOXAPARIN [Concomitant]
     Active Substance: ENOXAPARIN
     Dosage: 0.4 ML, 1X T?GLICH F?R 4 WOCHEN, INJEKTIONS-/INFUSIONSL?SUNG
     Route: 058
  8. COAPROVEL 150MG/12,5MG [Concomitant]
     Dosage: 150|12.5 MG, 1-0-0-0, TABLETTEN
     Route: 048
  9. PROPOFOL. [Suspect]
     Active Substance: PROPOFOL
     Dosage: NK NK, INTRAOPERATIVE ANAESTHESIA, SOLUTION FOR INJECTION/INFUSION
     Route: 042
  10. CAFEDRINE\THEODRENALINE [Suspect]
     Active Substance: CAFEDRINE\THEODRENALINE
     Dosage: NK NK, INTRAOPERATIVE ANAESTHESIA, SOLUTION FOR INJECTION/INFUSION
     Route: 042
  11. FENTANYL. [Suspect]
     Active Substance: FENTANYL
     Dosage: NK NK, INTRAOPERATIVE ANAESTHESIA, SOLUTION FOR INJECTION/INFUSION
     Route: 042
  12. METAMIZOL [Concomitant]
     Active Substance: METAMIZOLE SODIUM
     Dosage: 500 MG, 1-1-1-1, BEI BEDARF, TABLETTEN
     Route: 048
  13. APROVEL 75MG [Concomitant]
     Dosage: 75 MG, 0-0-1-0, TABLETTEN
     Route: 048

REACTIONS (2)
  - Liver function test abnormal [Unknown]
  - Systemic infection [Unknown]
